FAERS Safety Report 7787746-2 (Version None)
Quarter: 2011Q3

REPORT INFORMATION
  Report Type: 
  Country: None (occurrence: None)
  Receive Date: 20110929
  Receipt Date: 20100610
  Transmission Date: 20111222
  Serious: Yes (Hospitalization)
  Sender: FDA-Public Use
  Company Number: US-BAYER-201016267NA

PATIENT
  Age: 35 Year
  Sex: Female
  Weight: 54 kg

DRUGS (12)
  1. YAZ [Suspect]
     Indication: CONTRACEPTION
     Dosage: UNK UNK, QD
     Route: 048
     Dates: start: 20081101, end: 20090101
  2. SERTRALINE HYDROCHLORIDE [Concomitant]
     Indication: DEPRESSION
  3. YAZ [Suspect]
     Indication: MOOD SWINGS
  4. SERTRALINE HYDROCHLORIDE [Concomitant]
     Indication: OBSESSIVE-COMPULSIVE DISORDER
     Dosage: 100 MG, QD
     Dates: start: 20050101
  5. YAZ [Suspect]
     Indication: ACNE
  6. YAZ [Suspect]
     Indication: PREMENSTRUAL SYNDROME
  7. PRENATAL VITAMINS [Concomitant]
     Indication: SUPPLEMENTATION THERAPY
     Dosage: UNK UNK, QD
  8. CLONAZEPAM [Concomitant]
     Dosage: 1.5 MG, HS
     Route: 048
  9. YAZ [Suspect]
     Indication: DEPRESSION
  10. CALCIUM CARBONATE [Concomitant]
  11. IBUPROFEN [Concomitant]
     Indication: PAIN
     Dosage: UNK UNK, PRN
  12. HYDROCODONE BITARTRATE AND ACETAMINOPHEN [Concomitant]
     Dosage: UNK UNK, PRN
     Route: 048

REACTIONS (7)
  - PAIN [None]
  - VOMITING [None]
  - OEDEMA PERIPHERAL [None]
  - INJURY [None]
  - GAIT DISTURBANCE [None]
  - DEEP VEIN THROMBOSIS [None]
  - HYPERHIDROSIS [None]
